FAERS Safety Report 6746986-1 (Version None)
Quarter: 2010Q2

REPORT INFORMATION
  Report Type: 
  Country: None (occurrence: None)
  Receive Date: 20100528
  Receipt Date: 20100519
  Transmission Date: 20101027
  Serious: Yes (Other)
  Sender: FDA-Public Use
  Company Number: CA-JNJFOC-20100508869

PATIENT
  Sex: Female
  Weight: 98 kg

DRUGS (5)
  1. REMICADE [Suspect]
     Indication: CROHN'S DISEASE
     Route: 042
  2. REMICADE [Suspect]
     Route: 042
  3. TYLENOL (CAPLET) [Concomitant]
  4. ZANTAC [Concomitant]
  5. VITAMIN TAB [Concomitant]

REACTIONS (3)
  - ANTEPARTUM HAEMORRHAGE [None]
  - DRUG EXPOSURE DURING PREGNANCY [None]
  - GROIN ABSCESS [None]
